FAERS Safety Report 16958521 (Version 1)
Quarter: 2019Q4

REPORT INFORMATION
  Report Type: Spontaneous
  Country: GB (occurrence: GB)
  Receive Date: 20191024
  Receipt Date: 20191024
  Transmission Date: 20200122
  Serious: Yes (Other)
  Sender: FDA-Public Use
  Company Number: GB-ASTRAZENECA-2019SF48639

PATIENT
  Age: 71 Year
  Sex: Male

DRUGS (2)
  1. LOSEC [Suspect]
     Active Substance: OMEPRAZOLE
     Route: 048
  2. LOSEC [Suspect]
     Active Substance: OMEPRAZOLE
     Dosage: GENERIC MEDICINE OMEPRAZOLE
     Route: 048

REACTIONS (1)
  - Intervertebral discitis [Unknown]
